FAERS Safety Report 5116138-X (Version None)
Quarter: 2006Q3

REPORT INFORMATION
  Report Type: 
  Country: None (occurrence: None)
  Receive Date: 20060927
  Receipt Date: 20060609
  Transmission Date: 20061208
  Serious: No
  Sender: FDA-Public Use
  Company Number: US-BRISTOL-MYERS SQUIBB COMPANY-13408489

PATIENT
  Age: 42 Year
  Sex: Female

DRUGS (1)
  1. DEFINITY [Suspect]
     Indication: CARDIAC FUNCTION TEST
     Dosage: DOSE VALUE:  3 TO 4 CC
     Route: 040
     Dates: start: 20060609

REACTIONS (3)
  - COUGH [None]
  - PRURITUS [None]
  - URTICARIA [None]
